FAERS Safety Report 22726901 (Version 2)
Quarter: 2024Q1

REPORT INFORMATION
  Report Type: Spontaneous
  Country: US (occurrence: US)
  Receive Date: 20230720
  Receipt Date: 20240330
  Transmission Date: 20240409
  Serious: Yes (Death, Life-Threatening, Hospitalization, Other)
  Sender: FDA-Public Use
  Company Number: US-MLMSERVICE-20230707-4386088-1

PATIENT
  Age: 63 Year
  Sex: Male

DRUGS (1)
  1. DEXAMETHASONE [Suspect]
     Active Substance: DEXAMETHASONE
     Indication: Nervous system disorder
     Dosage: HIGH-DOSE
     Route: 065

REACTIONS (5)
  - Intestinal ischaemia [Fatal]
  - Septic shock [Fatal]
  - Disseminated strongyloidiasis [Fatal]
  - Small intestinal obstruction [Fatal]
  - Acute respiratory failure [Fatal]
